FAERS Safety Report 8761556 (Version 1)
Quarter: 2012Q4

REPORT INFORMATION
  Report Type: 
  Country: US (occurrence: US)
  Receive Date: 20120830
  Receipt Date: 20120830
  Transmission Date: 20130627
  Serious: No
  Sender: FDA-Public Use
  Company Number: US-TEVA-353184USA

PATIENT
  Age: 45 Year
  Sex: Female
  Weight: 74.46 kg

DRUGS (8)
  1. NUVIGIL [Suspect]
     Indication: HYPERSOMNIA
     Dosage: 250 or 500 mg daily
  2. METHYLPHENIDATE HYDROCHLORIDE [Concomitant]
     Indication: HYPERSOMNIA
     Route: 048
     Dates: start: 201001
  3. CYCLOBENZAPRINE HYDROCHLORIDE [Concomitant]
     Dosage: 30 Milligram Daily;
     Route: 048
  4. GABAPENTIN [Concomitant]
     Route: 048
  5. ARIPIPRAZOLE [Concomitant]
     Dosage: 10 Milligram Daily;
     Route: 048
  6. TOPIRAMATE [Concomitant]
     Dosage: 200 Milligram Daily;
     Route: 048
  7. FENTANYL [Concomitant]
     Dosage: 75 mcg per hour
     Route: 061
  8. ESCITALOPRAM OXALATE [Concomitant]
     Route: 048

REACTIONS (2)
  - Off label use [Not Recovered/Not Resolved]
  - Drug ineffective for unapproved indication [Not Recovered/Not Resolved]
